FAERS Safety Report 25161944 (Version 1)
Quarter: 2025Q2

REPORT INFORMATION
  Report Type: Report from Study
  Country: US (occurrence: US)
  Receive Date: 20250404
  Receipt Date: 20250404
  Transmission Date: 20250717
  Serious: Yes (Disabling)
  Sender: ALEXION PHARMACEUTICALS
  Company Number: US-AstraZeneca-CH-00838015A

PATIENT
  Weight: 71.7 kg

DRUGS (1)
  1. BENRALIZUMAB [Suspect]
     Active Substance: BENRALIZUMAB
     Indication: Illness
     Dosage: 30 MILLIGRAM, Q8W

REACTIONS (2)
  - Pain [Unknown]
  - Decreased activity [Unknown]
